FAERS Safety Report 8044101-8 (Version None)
Quarter: 2012Q1

REPORT INFORMATION
  Report Type: 
  Country: None (occurrence: None)
  Receive Date: 20120113
  Receipt Date: 20120104
  Transmission Date: 20120608
  Serious: Yes (Other)
  Sender: FDA-Public Use
  Company Number: US-ABBOTT-12P-163-0889966-00

PATIENT
  Sex: Male
  Weight: 79.904 kg

DRUGS (1)
  1. HUMIRA [Suspect]
     Indication: CROHN'S DISEASE
     Route: 058
     Dates: start: 20110204

REACTIONS (2)
  - SKIN LESION [None]
  - SQUAMOUS CELL CARCINOMA OF SKIN [None]
